FAERS Safety Report 5901251-7 (Version None)
Quarter: 2008Q3

REPORT INFORMATION
  Report Type: 
  Country: None (occurrence: None)
  Receive Date: 20080929
  Receipt Date: 20080711
  Transmission Date: 20090109
  Serious: Yes (Other)
  Sender: FDA-Public Use
  Company Number: US-BRISTOL-MYERS SQUIBB COMPANY-14258628

PATIENT
  Age: 17 Year
  Sex: Female

DRUGS (3)
  1. ORENCIA [Suspect]
     Dosage: 3RD-4TH INFUSION
  2. SULINDAC [Concomitant]
  3. STEROIDS [Concomitant]

REACTIONS (1)
  - ABDOMINAL ABSCESS [None]
